FAERS Safety Report 6934579-2 (Version None)
Quarter: 2010Q3

REPORT INFORMATION
  Report Type: 
  Country: None (occurrence: None)
  Receive Date: 20100820
  Receipt Date: 20100812
  Transmission Date: 20110219
  Serious: Yes (Other)
  Sender: FDA-Public Use
  Company Number: US-ABBOTT-10P-163-0663036-00

PATIENT
  Sex: Female
  Weight: 122.13 kg

DRUGS (19)
  1. HUMIRA [Suspect]
     Indication: CROHN'S DISEASE
     Dates: start: 20100401, end: 20100616
  2. HUMIRA [Suspect]
     Dates: start: 20100707, end: 20100712
  3. SETRALINE [Concomitant]
     Indication: FIBROMYALGIA
  4. TRIAMTERENE AND HYDROCHLOROTHIAZIDE [Concomitant]
     Indication: PRODUCT USED FOR UNKNOWN INDICATION
     Dosage: 37.5/25
  5. PREDNISONE [Concomitant]
     Indication: CROHN'S DISEASE
  6. ATENOLOL [Concomitant]
     Indication: HYPERTENSION
  7. ATENOLOL [Concomitant]
     Indication: HEART RATE
  8. PROTONIX [Concomitant]
     Indication: GASTROOESOPHAGEAL REFLUX DISEASE
  9. FLEXERIL [Concomitant]
     Indication: FIBROMYALGIA
  10. FLEXERIL [Concomitant]
     Indication: DIARRHOEA
  11. CLONAZEPAM [Concomitant]
     Indication: INSOMNIA
  12. PROMETHAZINE [Concomitant]
     Indication: NAUSEA
  13. AMITRIPTYLINE HCL [Concomitant]
     Indication: DEPRESSION
  14. AMITRIPTYLINE HCL [Concomitant]
     Indication: PAIN
  15. TOPAMAX [Concomitant]
     Indication: MIGRAINE
  16. TOPAMAX [Concomitant]
     Indication: FIBROMYALGIA
  17. NABUMETONE [Concomitant]
     Indication: ARTHRITIS
  18. SAVELLA [Concomitant]
     Indication: INSOMNIA
  19. SAVELLA [Concomitant]
     Indication: FIBROMYALGIA

REACTIONS (8)
  - BACK PAIN [None]
  - DYSURIA [None]
  - ENDOMETRIAL ABLATION [None]
  - FEELING HOT [None]
  - PYREXIA [None]
  - URINARY TRACT INFECTION [None]
  - VAGINAL HAEMORRHAGE [None]
  - VULVOVAGINAL PAIN [None]
